FAERS Safety Report 9616010 (Version 1)
Quarter: 2013Q4

REPORT INFORMATION
  Report Type: Spontaneous
  Country: ZA (occurrence: ZA)
  Receive Date: 20131011
  Receipt Date: 20131011
  Transmission Date: 20140711
  Serious: Yes (Death)
  Sender: FDA-Public Use
  Company Number: ZA-ABBVIE-13P-143-1155044-00

PATIENT
  Sex: Female

DRUGS (1)
  1. SURVANTA [Suspect]
     Indication: PRODUCT USED FOR UNKNOWN INDICATION
     Dates: start: 20131005

REACTIONS (3)
  - Adverse drug reaction [Fatal]
  - Blood pressure decreased [Fatal]
  - Pallor [Fatal]
